FAERS Safety Report 5073398-1 (Version None)
Quarter: 2006Q3

REPORT INFORMATION
  Report Type: 
  Country: None (occurrence: None)
  Receive Date: 20060808
  Receipt Date: 20060728
  Transmission Date: 20061208
  Serious: Yes (Other)
  Sender: FDA-Public Use
  Company Number: FR-JNJFOC-20060705934

PATIENT
  Age: 35 Year
  Sex: Male

DRUGS (10)
  1. REMICADE [Suspect]
  2. REMICADE [Suspect]
  3. REMICADE [Suspect]
  4. REMICADE [Suspect]
  5. REMICADE [Suspect]
  6. REMICADE [Suspect]
  7. REMICADE [Suspect]
     Dosage: 14 WEEKS
  8. REMICADE [Suspect]
     Dosage: 6 WEEK
  9. REMICADE [Suspect]
     Dosage: 2 WEEK
  10. REMICADE [Suspect]
     Indication: SPONDYLITIS
     Dosage: 0 WEEK

REACTIONS (2)
  - ANGIONEUROTIC OEDEMA [None]
  - INFUSION RELATED REACTION [None]
